FAERS Safety Report 8960534 (Version 1)
Quarter: 2012Q4

REPORT INFORMATION
  Report Type: Spontaneous
  Country: NL (occurrence: None)
  Receive Date: 20121203
  Receipt Date: 20121203
  Transmission Date: 20130627
  Serious: Yes (Death)
  Sender: FDA-Public Use
  Company Number: B0848635A

PATIENT

DRUGS (2)
  1. PAZOPANIB [Suspect]
     Indication: NEOPLASM
     Route: 048
  2. DOCETAXEL [Suspect]
     Indication: NEOPLASM

REACTIONS (1)
  - Cardiotoxicity [None]
